FAERS Safety Report 14904185 (Version 1)
Quarter: 2018Q2

REPORT INFORMATION
  Report Type: Spontaneous
  Country: VN (occurrence: VN)
  Receive Date: 20180516
  Receipt Date: 20180516
  Transmission Date: 20180711
  Serious: Yes (Hospitalization)
  Sender: FDA-Public Use
  Company Number: VN-ASTRAZENECA-2018SE63296

PATIENT
  Age: 68 Year
  Sex: Female
  Weight: 65 kg

DRUGS (5)
  1. BETALOC ZOK [Concomitant]
     Active Substance: METOPROLOL SUCCINATE
  2. ASPIRIN. [Concomitant]
     Active Substance: ASPIRIN
  3. NARIS [Concomitant]
  4. FORXIGA [Suspect]
     Active Substance: DAPAGLIFLOZIN
     Route: 048
  5. INSULIN [Concomitant]
     Active Substance: INSULIN NOS

REACTIONS (2)
  - Rash pruritic [Recovered/Resolved]
  - Skin exfoliation [Recovered/Resolved]

NARRATIVE: CASE EVENT DATE: 20180407
